FAERS Safety Report 5495368-1 (Version None)
Quarter: 2007Q4

REPORT INFORMATION
  Report Type: 
  Country: None (occurrence: None)
  Receive Date: 20071024
  Receipt Date: 20071012
  Transmission Date: 20080405
  Serious: Yes (Other)
  Sender: FDA-Public Use
  Company Number: GB-PFIZER INC-2007087235

PATIENT
  Age: 52 Year
  Sex: Male
  Weight: 115 kg

DRUGS (7)
  1. CHAMPIX [Suspect]
     Indication: SMOKING CESSATION THERAPY
     Route: 048
  2. DIAZEPAM [Concomitant]
     Route: 048
     Dates: start: 19950101
  3. KAPAKE [Concomitant]
     Route: 048
     Dates: start: 19950101
  4. LISINOPRIL [Concomitant]
     Route: 048
  5. OXYTETRACYCLINE [Concomitant]
     Route: 048
     Dates: start: 19950101
  6. SIMVASTATIN [Concomitant]
     Route: 048
     Dates: start: 20020101
  7. TRAMADOL HCL [Concomitant]
     Route: 048
     Dates: start: 19950101

REACTIONS (4)
  - BLOOD GLUCOSE ABNORMAL [None]
  - CONSTIPATION [None]
  - DRY MOUTH [None]
  - VISUAL DISTURBANCE [None]
